FAERS Safety Report 9067415 (Version 1)
Quarter: 2013Q1

REPORT INFORMATION
  Report Type: Spontaneous
  Country: MX (occurrence: MX)
  Receive Date: 20130214
  Receipt Date: 20130214
  Transmission Date: 20140127
  Serious: Yes (Hospitalization)
  Sender: FDA-Public Use
  Company Number: MX-B.I. PHARMACEUTICALS,INC./RIDGEFIELD-2013-MX-00028MX

PATIENT
  Age: 63 Year
  Sex: Male
  Weight: 82 kg

DRUGS (6)
  1. ATROVENT [Suspect]
     Indication: CHRONIC OBSTRUCTIVE PULMONARY DISEASE
     Dosage: 20 DROPS ON 3ML TO SOLUTION
     Route: 055
     Dates: start: 20130109
  2. MICCIL [Concomitant]
     Indication: CONGESTIVE CARDIOMYOPATHY
     Dosage: 1 G
  3. SPIRONOLACTONE [Concomitant]
     Indication: CONGESTIVE CARDIOMYOPATHY
  4. LOSARTAN [Concomitant]
     Indication: CONGESTIVE CARDIOMYOPATHY
     Dosage: 20 MG
  5. DIGOXINA [Concomitant]
     Indication: CONGESTIVE CARDIOMYOPATHY
     Dosage: TWICE TO WEEK
  6. ASPIRINA PROTECT [Concomitant]
     Indication: CONGESTIVE CARDIOMYOPATHY

REACTIONS (2)
  - Cellulitis [Not Recovered/Not Resolved]
  - Refusal of treatment by patient [None]
